FAERS Safety Report 17172037 (Version 2)
Quarter: 2019Q4

REPORT INFORMATION
  Report Type: Spontaneous
  Country: JP (occurrence: JP)
  Receive Date: 20191218
  Receipt Date: 20191231
  Transmission Date: 20200122
  Serious: Yes (Hospitalization, Other)
  Sender: FDA-Public Use
  Company Number: JP-SHIRE-JP201943227AA

PATIENT

DRUGS (3)
  1. ASPIRIN (E.C.) [Concomitant]
     Active Substance: ASPIRIN
     Indication: ESSENTIAL THROMBOCYTHAEMIA
     Dosage: LOW DOSE
     Route: 048
  2. AGRYLIN [Suspect]
     Active Substance: ANAGRELIDE HYDROCHLORIDE
     Indication: ESSENTIAL THROMBOCYTHAEMIA
     Dosage: 3 MILLIGRAM, 3X/DAY:TID
     Route: 048
     Dates: start: 20190129
  3. HYDROXYCARBAMIDE [Concomitant]
     Active Substance: HYDROXYUREA
     Indication: ESSENTIAL THROMBOCYTHAEMIA
     Dosage: UNK
     Route: 048
     Dates: end: 201907

REACTIONS (3)
  - Cerebral infarction [Recovered/Resolved]
  - Cerebral artery stenosis [Recovered/Resolved]
  - Basilar artery stenosis [Recovered/Resolved]

NARRATIVE: CASE EVENT DATE: 201907
